FAERS Safety Report 4448488-4 (Version None)
Quarter: 2004Q3

REPORT INFORMATION
  Report Type: 
  Country: None (occurrence: None)
  Receive Date: 20040909
  Receipt Date: 20040909
  Transmission Date: 20050211
  Serious: Yes (Disabling)
  Sender: FDA-Public Use
  Company Number: None

PATIENT
  Age: 78 Year
  Sex: Male

DRUGS (7)
  1. ALTEPLASE 50MG VIAL GENENTECH [Suspect]
     Indication: THROMBOTIC STROKE
     Dosage: 10MG ONCE INTRA-ARTERIAL
     Route: 013
     Dates: start: 20040820, end: 20040820
  2. ATENOLOL [Concomitant]
  3. WARFARIN SODIUM [Concomitant]
  4. INR 1.3 [Concomitant]
  5. NITROGLYCERIN [Concomitant]
  6. VENTOLIN [Concomitant]
  7. MULTI-VITAMIN [Concomitant]

REACTIONS (3)
  - HAEMORRHAGIC STROKE [None]
  - SUBARACHNOID HAEMORRHAGE [None]
  - THROMBOTIC STROKE [None]
